FAERS Safety Report 17022479 (Version 2)
Quarter: 2019Q4

REPORT INFORMATION
  Report Type: Report from Study
  Country: US (occurrence: US)
  Receive Date: 20191112
  Receipt Date: 20191213
  Transmission Date: 20200122
  Serious: Yes (Hospitalization)
  Sender: FDA-Public Use
  Company Number: US-JNJFOC-20191103997

PATIENT
  Age: 19 Year
  Sex: Female
  Weight: 92.62 kg

DRUGS (5)
  1. INFLIXIMAB, RECOMBINANT [Suspect]
     Active Substance: INFLIXIMAB
     Indication: INFLAMMATORY BOWEL DISEASE
     Route: 042
     Dates: start: 20161128, end: 20170927
  2. ZOFRAN [Concomitant]
     Active Substance: ONDANSETRON HYDROCHLORIDE
     Route: 065
  3. ENTYVIO [Concomitant]
     Active Substance: VEDOLIZUMAB
     Route: 065
     Dates: start: 20180125, end: 20190314
  4. KLONOPIN [Concomitant]
     Active Substance: CLONAZEPAM
     Route: 065
  5. DIPHENHYDRAMINE HYDROCHLORIDE. [Concomitant]
     Active Substance: DIPHENHYDRAMINE HYDROCHLORIDE
     Route: 065

REACTIONS (1)
  - Colitis ulcerative [Recovered/Resolved]

NARRATIVE: CASE EVENT DATE: 20190219
